FAERS Safety Report 10061203 (Version 2)
Quarter: 2014Q2

REPORT INFORMATION
  Report Type: Spontaneous
  Country: IT (occurrence: IT)
  Receive Date: 20140407
  Receipt Date: 20140417
  Transmission Date: 20141212
  Serious: Yes (Other)
  Sender: FDA-Public Use
  Company Number: IT-RANBAXY-2014RR-79625

PATIENT
  Age: 40 Year
  Sex: Female

DRUGS (2)
  1. AMOXICILLIN/CLAVULANIC ACID [Suspect]
     Indication: TOOTH INFECTION
     Dosage: 1 G, DAILY
     Route: 048
     Dates: start: 20140313, end: 20140313
  2. NIMESULIDE [Suspect]
     Indication: PULPITIS DENTAL
     Dosage: 100 MG, DAILY
     Route: 048
     Dates: start: 20140313, end: 20140313

REACTIONS (1)
  - Lip oedema [Recovering/Resolving]
